FAERS Safety Report 24609414 (Version 1)
Quarter: 2024Q4

REPORT INFORMATION
  Report Type: Spontaneous
  Country: CN (occurrence: None)
  Receive Date: 20241112
  Receipt Date: 20241112
  Transmission Date: 20250115
  Serious: Yes (Hospitalization)
  Sender: ALEXION PHARMACEUTICALS
  Company Number: CN-ASTRAZENECA-202411CHN001693CN

PATIENT
  Age: 43 Year
  Weight: 80 kg

DRUGS (10)
  1. BRILINTA [Suspect]
     Active Substance: TICAGRELOR
     Indication: Myocardial infarction
     Dosage: 90 MILLIGRAM, QD
  2. BRILINTA [Suspect]
     Active Substance: TICAGRELOR
     Dosage: 90 MILLIGRAM, QD
  3. BRILINTA [Suspect]
     Active Substance: TICAGRELOR
     Dosage: 90 MILLIGRAM, QD
  4. BRILINTA [Suspect]
     Active Substance: TICAGRELOR
     Dosage: 90 MILLIGRAM, QD
  5. ASPIRIN [Suspect]
     Active Substance: ASPIRIN
     Indication: Myocardial infarction
     Dosage: 1 MILLIGRAM, QD
  6. ASPIRIN [Suspect]
     Active Substance: ASPIRIN
     Dosage: 1 MILLIGRAM, QD
  7. ASPIRIN [Suspect]
     Active Substance: ASPIRIN
     Dosage: 1 MILLIGRAM, QD
  8. ASPIRIN [Suspect]
     Active Substance: ASPIRIN
     Dosage: 1 MILLIGRAM, QD
  9. AMINOCAPROIC ACID [Concomitant]
     Active Substance: AMINOCAPROIC ACID
     Indication: Haemorrhage
     Dosage: 4 GRAM
  10. AMINOCAPROIC ACID [Concomitant]
     Active Substance: AMINOCAPROIC ACID
     Indication: Symptomatic treatment
     Dosage: 4 GRAM

REACTIONS (2)
  - Haemoptysis [Recovering/Resolving]
  - Cough [Recovering/Resolving]
